FAERS Safety Report 8518221-5 (Version None)
Quarter: 2012Q3

REPORT INFORMATION
  Report Type: 
  Country: None (occurrence: None)
  Receive Date: 20120712
  Receipt Date: 20120712
  Transmission Date: 20120928
  Serious: Yes (Other)
  Sender: FDA-Public Use
  Company Number: None

PATIENT
  Age: 26 Year
  Sex: Female
  Weight: 69 kg

DRUGS (3)
  1. CLEAN + CLEAR MORNING BURST FACIAL SCRUB [Suspect]
     Indication: ACNE
     Dosage: PEA SIZE 2X A DAY, TOPICAL
     Route: 061
     Dates: start: 20120618, end: 20120618
  2. CLEAN AND CLEAR ADVANTAGE ACNE SPOT TREATMENT [Suspect]
     Dosage: PEA SIZE, 2X A DAY, TOPICAL
     Route: 061
     Dates: start: 20120618, end: 20120618
  3. C+C MORNING BURST DETOXING FACIAL SCRUB [Suspect]
     Dosage: PEA SIZE, 2X A DAY, TOPICAL
     Route: 061
     Dates: start: 20120618, end: 20120618

REACTIONS (4)
  - SKIN DISORDER [None]
  - CONDITION AGGRAVATED [None]
  - DRY SKIN [None]
  - ACNE [None]
